FAERS Safety Report 18977681 (Version 2)
Quarter: 2021Q2

REPORT INFORMATION
  Report Type: Spontaneous
  Country: VE (occurrence: VE)
  Receive Date: 20210306
  Receipt Date: 20210609
  Transmission Date: 20210717
  Serious: Yes (Other)
  Sender: FDA-Public Use
  Company Number: NVSC2020VE217904

PATIENT
  Sex: Female

DRUGS (2)
  1. GLIVEC [Suspect]
     Active Substance: IMATINIB MESYLATE
     Indication: CHRONIC MYELOID LEUKAEMIA
     Dosage: 4 DF
     Route: 065
  2. GLIVEC [Suspect]
     Active Substance: IMATINIB MESYLATE
     Dosage: 400 MG
     Route: 065

REACTIONS (8)
  - Nausea [Recovered/Resolved]
  - Pyrexia [Unknown]
  - Headache [Unknown]
  - Haemoglobin decreased [Unknown]
  - Spleen disorder [Unknown]
  - Pain [Unknown]
  - Vomiting [Recovered/Resolved]
  - White blood cell count increased [Unknown]
